FAERS Safety Report 8614180-5 (Version None)
Quarter: 2012Q3

REPORT INFORMATION
  Report Type: 
  Country: None (occurrence: None)
  Receive Date: 20120813
  Receipt Date: 20120813
  Transmission Date: 20120928
  Serious: Yes (Other)
  Sender: FDA-Public Use
  Company Number: None

PATIENT
  Age: 30 Year
  Sex: Female
  Weight: 58.9676 kg

DRUGS (2)
  1. ESCITALOPRAM [Suspect]
     Indication: DEPRESSION
     Dosage: 20 MG ONCE DAILY PO
     Route: 048
     Dates: start: 20120725, end: 20120802
  2. ESCITALOPRAM [Suspect]
     Indication: ANXIETY
     Dosage: 20 MG ONCE DAILY PO
     Route: 048
     Dates: start: 20120725, end: 20120802

REACTIONS (8)
  - CARDIAC DISORDER [None]
  - NAUSEA [None]
  - SOMNOLENCE [None]
  - FATIGUE [None]
  - CHEST PAIN [None]
  - PRODUCT SUBSTITUTION ISSUE [None]
  - DIARRHOEA [None]
  - AFFECTIVE DISORDER [None]
